FAERS Safety Report 4667012-4 (Version None)
Quarter: 2005Q2

REPORT INFORMATION
  Report Type: 
  Country: None (occurrence: None)
  Receive Date: 20050520
  Receipt Date: 20040413
  Transmission Date: 20051028
  Serious: Yes (Other)
  Sender: FDA-Public Use
  Company Number: PHEH2004US04239

PATIENT
  Age: 63 Year
  Sex: Male

DRUGS (6)
  1. AREDIA [Suspect]
     Indication: MULTIPLE MYELOMA
     Dosage: 90 MG, QMO
     Dates: start: 20020901, end: 20031201
  2. METHYLPREDNISOLONE [Concomitant]
     Dosage: 2000 MG, UNK
     Dates: start: 20020820, end: 20030117
  3. VINCRISTINE + ADRIAMYCIN + DEXAMETHASONE [Concomitant]
     Dates: start: 19930101, end: 19940101
  4. THALIDOMID [Concomitant]
     Indication: MULTIPLE MYELOMA
     Dates: start: 20030101
  5. DECADRON [Concomitant]
     Dates: start: 19060919
  6. ARA-C [Concomitant]
     Indication: MULTIPLE MYELOMA
     Dosage: UNK, UNK
     Dates: start: 20030101

REACTIONS (7)
  - BONE DEBRIDEMENT [None]
  - BONE DISORDER [None]
  - IMPAIRED HEALING [None]
  - JAW DISORDER [None]
  - OSTEONECROSIS [None]
  - TOOTH EXTRACTION [None]
  - TOOTHACHE [None]
